FAERS Safety Report 8334219-4 (Version None)
Quarter: 2012Q2

REPORT INFORMATION
  Report Type: 
  Country: None (occurrence: None)
  Receive Date: 20120503
  Receipt Date: 20120426
  Transmission Date: 20120825
  Serious: Yes (Death, Life-Threatening, Hospitalization, Disabling, Other)
  Sender: FDA-Public Use
  Company Number: US-GLAXOSMITHKLINE-A0976161A

PATIENT
  Sex: Female

DRUGS (2)
  1. UNKNOWN [Concomitant]
  2. ARIXTRA [Suspect]
     Indication: THROMBOSIS PROPHYLAXIS
     Dosage: 2.5MG UNKNOWN
     Route: 058
     Dates: start: 20120410, end: 20120420

REACTIONS (8)
  - CEREBROVASCULAR ACCIDENT [None]
  - HEPARIN-INDUCED THROMBOCYTOPENIA [None]
  - CONDITION AGGRAVATED [None]
  - DEATH [None]
  - DEEP VEIN THROMBOSIS [None]
  - RENAL FAILURE [None]
  - MULTI-ORGAN FAILURE [None]
  - PAIN [None]
